FAERS Safety Report 6516677-0 (Version None)
Quarter: 2009Q4

REPORT INFORMATION
  Report Type: 
  Country: None (occurrence: None)
  Receive Date: 20091223
  Receipt Date: 20091124
  Transmission Date: 20100525
  Serious: No
  Sender: FDA-Public Use
  Company Number: US-BAYER-200917178BCC

PATIENT
  Age: 80 Year
  Sex: Male
  Weight: 101 kg

DRUGS (9)
  1. ALEVE (CAPLET) [Suspect]
     Indication: ARTHRITIS
     Dosage: UNIT DOSE: 220 MG
     Route: 048
     Dates: start: 20091122, end: 20091122
  2. ALEVE (CAPLET) [Suspect]
     Dosage: TOTAL DAILY DOSE: 220 MG  UNIT DOSE: 220 MG
     Route: 048
     Dates: start: 20091123
  3. METOPROLOL TARTRATE [Concomitant]
     Route: 065
  4. TARTRATE [Concomitant]
     Route: 065
  5. BENAZEPRIL HYDROCHLORIDE [Concomitant]
     Route: 065
  6. HYOMAX [Concomitant]
     Route: 065
  7. OMEPRAZOLE [Concomitant]
     Route: 065
  8. ANTARA (MICRONIZED) [Concomitant]
     Route: 065
  9. VYTORIN [Concomitant]
     Route: 065

REACTIONS (1)
  - CONSTIPATION [None]
